FAERS Safety Report 8349171 (Version 7)
Quarter: 2015Q2

REPORT INFORMATION
  Report Type: Spontaneous
  Country: US (occurrence: US)
  Receive Date: 20120123
  Receipt Date: 20150514
  Transmission Date: 20150821
  Serious: Yes (Hospitalization, Disabling, Other)
  Sender: FDA-Public Use
  Company Number: US-009507513-1201USA02541

PATIENT
  Sex: Female
  Weight: 72.58 kg

DRUGS (4)
  1. FOSAMAX [Suspect]
     Active Substance: ALENDRONATE SODIUM
     Indication: OSTEOPENIA
     Dosage: 5 MG, QD
     Route: 048
     Dates: start: 20010103
  2. PREMPRO [Concomitant]
     Active Substance: ESTROGENS, CONJUGATED\MEDROXYPROGESTERONE ACETATE
     Dosage: UNK
     Dates: start: 19990928, end: 20010119
  3. FOSAMAX [Suspect]
     Active Substance: ALENDRONATE SODIUM
     Indication: OSTEOPOROSIS
     Dosage: 70 MG, QW
     Route: 048
     Dates: start: 20010302, end: 200902
  4. FOSAMAX [Suspect]
     Active Substance: ALENDRONATE SODIUM
     Dosage: 10 MG, UNK
     Route: 048
     Dates: start: 2003, end: 200902

REACTIONS (34)
  - Osteonecrosis [Unknown]
  - Thrombophlebitis superficial [Unknown]
  - Intervertebral disc degeneration [Unknown]
  - Chronic fatigue syndrome [Unknown]
  - Pain in extremity [Unknown]
  - Intramedullary rod insertion [Unknown]
  - Migraine [Unknown]
  - Hyperparathyroidism [Unknown]
  - Fibromyalgia [Unknown]
  - Adverse event [Unknown]
  - Hyperlipidaemia [Unknown]
  - Osteoarthritis [Unknown]
  - Rheumatic disorder [Unknown]
  - C-reactive protein increased [Unknown]
  - Intramedullary rod insertion [Unknown]
  - Anaemia postoperative [Unknown]
  - Staphylococcal infection [Unknown]
  - Spinal compression fracture [Unknown]
  - Femur fracture [Not Recovered/Not Resolved]
  - Fall [Unknown]
  - Vitamin D deficiency [Unknown]
  - Exostosis [Unknown]
  - Carpal tunnel syndrome [Unknown]
  - Hypoproteinaemia [Unknown]
  - Tooth fracture [Unknown]
  - Hypothyroidism [Unknown]
  - Haemangioma [Unknown]
  - Dental caries [Unknown]
  - Tooth disorder [Unknown]
  - Bone metabolism disorder [Unknown]
  - Postoperative fever [Unknown]
  - Hypoalbuminaemia [Unknown]
  - Hypertension [Unknown]
  - Off label use [Unknown]

NARRATIVE: CASE EVENT DATE: 20010125
